FAERS Safety Report 10784240 (Version 1)
Quarter: 2015Q1

REPORT INFORMATION
  Report Type: Report from Study
  Country: US (occurrence: US)
  Receive Date: 20150211
  Receipt Date: 20150211
  Transmission Date: 20150721
  Serious: Yes (Disabling)
  Sender: FDA-Public Use
  Company Number: US-AMGEN-USASL2015012208

PATIENT
  Sex: Female
  Weight: 29.48 kg

DRUGS (1)
  1. ENBREL [Suspect]
     Active Substance: ETANERCEPT
     Indication: PSORIASIS
     Dosage: 50 MG, QWK
     Route: 058
     Dates: start: 2011

REACTIONS (2)
  - Psoriasis [Recovering/Resolving]
  - Tuberculosis [Recovered/Resolved with Sequelae]

NARRATIVE: CASE EVENT DATE: 201402
